FAERS Safety Report 9173389 (Version 2)
Quarter: 2013Q2

REPORT INFORMATION
  Report Type: Spontaneous
  Country: US (occurrence: US)
  Receive Date: 20130320
  Receipt Date: 20130415
  Transmission Date: 20140414
  Serious: Yes (Hospitalization)
  Sender: FDA-Public Use
  Company Number: US-AMGEN-USASP2013016789

PATIENT
  Age: 74 Year
  Sex: Female
  Weight: 56.24 kg

DRUGS (6)
  1. PROLIA [Suspect]
     Indication: OSTEOPOROSIS
     Dosage: 60 MG, UNK
     Route: 058
     Dates: end: 20130128
  2. CYMBALTA [Concomitant]
     Indication: DEPRESSION
  3. DILANTIN                           /00017401/ [Concomitant]
     Dosage: 100 MG, UNK
     Route: 048
  4. HYDROCHLOROTHIAZIDE [Concomitant]
     Indication: HYPERTENSION
     Dosage: 20 MG, UNK
     Route: 048
  5. KOMBIGLYZE [Concomitant]
  6. LEVEMIR [Concomitant]

REACTIONS (11)
  - Nausea [Recovered/Resolved]
  - Vomiting [Recovered/Resolved]
  - Abdominal pain [Recovered/Resolved]
  - Chills [Recovered/Resolved]
  - Fatigue [Recovered/Resolved]
  - Gait disturbance [Recovered/Resolved]
  - Pyrexia [Recovered/Resolved]
  - Malaise [Unknown]
  - Dehydration [Unknown]
  - Weight decreased [Unknown]
  - Bone pain [Unknown]
